FAERS Safety Report 18533738 (Version 1)
Quarter: 2020Q4

REPORT INFORMATION
  Report Type: Spontaneous
  Country: US (occurrence: US)
  Receive Date: 20201121
  Receipt Date: 20201121
  Transmission Date: 20210114
  Serious: Yes (Disabling)
  Sender: FDA-Public Use
  Company Number: None

PATIENT
  Age: 2 Year
  Sex: Male
  Weight: 16.2 kg

DRUGS (1)
  1. CLEARLAX [Suspect]
     Active Substance: POLYETHYLENE GLYCOL 3350
     Indication: FAECES HARD
     Dosage: ?          QUANTITY:.5 CAPFUL;?
     Route: 048
     Dates: start: 20201110, end: 20201119

REACTIONS (3)
  - Sleep disorder [None]
  - Behaviour disorder [None]
  - Speech disorder [None]

NARRATIVE: CASE EVENT DATE: 20201115
